FAERS Safety Report 4680774-5 (Version None)
Quarter: 2005Q2

REPORT INFORMATION
  Report Type: 
  Country: None (occurrence: None)
  Receive Date: 20050601
  Receipt Date: 20050601
  Transmission Date: 20051028
  Serious: No
  Sender: FDA-Public Use
  Company Number: None

PATIENT
  Age: 63 Year
  Sex: Female

DRUGS (3)
  1. CISPLATIN [Suspect]
  2. CARBOPLATIN [Suspect]
  3. RADIOPTHERAPY [Suspect]

REACTIONS (4)
  - NAUSEA [None]
  - ODYNOPHAGIA [None]
  - PYREXIA [None]
  - VOMITING [None]
